FAERS Safety Report 7545995-2 (Version None)
Quarter: 2011Q2

REPORT INFORMATION
  Report Type: 
  Country: None (occurrence: None)
  Receive Date: 20110614
  Receipt Date: 20110601
  Transmission Date: 20111010
  Serious: Yes (Other)
  Sender: FDA-Public Use
  Company Number: PHHY2011DE48210

PATIENT
  Age: 69 Year
  Sex: Female

DRUGS (2)
  1. ZOLEDRONIC ACID [Suspect]
     Dosage: UNK
     Route: 042
     Dates: start: 20090101, end: 20090801
  2. CORTISONE ACETATE [Concomitant]

REACTIONS (2)
  - OSTEONECROSIS OF JAW [None]
  - WOUND DEHISCENCE [None]
